FAERS Safety Report 7071484-8 (Version None)
Quarter: 2010Q4

REPORT INFORMATION
  Report Type: 
  Country: None (occurrence: None)
  Receive Date: 20101029
  Receipt Date: 20091016
  Transmission Date: 20110411
  Serious: No
  Sender: FDA-Public Use
  Company Number: A0806748A

PATIENT
  Age: 78 Year
  Sex: Male

DRUGS (6)
  1. ADVAIR DISKUS 100/50 [Suspect]
     Indication: PRODUCT USED FOR UNKNOWN INDICATION
     Dosage: 1PUFF TWICE PER DAY
     Route: 055
  2. ALBUTEROL [Concomitant]
  3. FAMOTIDINE [Concomitant]
  4. ZETIA [Concomitant]
  5. MOBIC [Concomitant]
  6. NITROGLYCERIN [Concomitant]

REACTIONS (3)
  - DRUG INEFFECTIVE [None]
  - INHALATION THERAPY [None]
  - PRODUCT QUALITY ISSUE [None]
